FAERS Safety Report 8338070-0 (Version None)
Quarter: 2012Q2

REPORT INFORMATION
  Report Type: 
  Country: None (occurrence: None)
  Receive Date: 20120504
  Receipt Date: 20120430
  Transmission Date: 20120825
  Serious: Yes (Life-Threatening, Hospitalization, Other)
  Sender: FDA-Public Use
  Company Number: FR-ASTRAZENECA-2012SE26643

PATIENT
  Age: 9188 Day
  Sex: Male

DRUGS (7)
  1. PANTOPRAZOLE [Concomitant]
     Route: 048
  2. QUETIAPINE FUMARATE [Suspect]
     Indication: SCHIZOPHRENIA, PARANOID TYPE
     Route: 048
     Dates: end: 20120407
  3. LEPTICUR [Suspect]
     Indication: SCHIZOPHRENIA, PARANOID TYPE
     Route: 048
     Dates: end: 20120407
  4. LORAZEPAM [Concomitant]
     Route: 048
  5. CLOPIXOL [Suspect]
     Indication: SCHIZOPHRENIA, PARANOID TYPE
     Route: 048
     Dates: end: 20120407
  6. DEPAKOTE [Concomitant]
     Route: 048
  7. CLOZAPINE [Suspect]
     Indication: SCHIZOPHRENIA, PARANOID TYPE
     Route: 048
     Dates: end: 20120407

REACTIONS (5)
  - MULTI-ORGAN FAILURE [None]
  - ERYTHEMA [None]
  - MENTAL DISORDER [None]
  - SEPSIS [None]
  - COLITIS ISCHAEMIC [None]
